FAERS Safety Report 7107535-1 (Version None)
Quarter: 2010Q4

REPORT INFORMATION
  Report Type: 
  Country: None (occurrence: None)
  Receive Date: 20101117
  Receipt Date: 20101104
  Transmission Date: 20110411
  Serious: Yes (Hospitalization)
  Sender: FDA-Public Use
  Company Number: KR-ELI_LILLY_AND_COMPANY-KR201011001501

PATIENT
  Age: 53 Year
  Sex: Male
  Weight: 70 kg

DRUGS (4)
  1. HUMALOG MIX 75/25 [Suspect]
     Indication: TYPE 2 DIABETES MELLITUS
     Dosage: 20 U, 2/D
     Route: 058
     Dates: start: 20100929
  2. HUMALOG MIX 75/25 [Suspect]
     Dosage: 24 U, DAILY (1/D)
     Route: 058
     Dates: start: 20100929
  3. HUMALOG MIX 75/25 [Suspect]
     Dosage: 24 U, 2/D
     Route: 058
  4. HUMALOG MIX 75/25 [Suspect]
     Dosage: 18 U, DAILY (1/D)
     Route: 050

REACTIONS (2)
  - BLOOD GLUCOSE INCREASED [None]
  - HYPOKINESIA [None]
